FAERS Safety Report 7487354-7 (Version None)
Quarter: 2011Q2

REPORT INFORMATION
  Report Type: 
  Country: None (occurrence: None)
  Receive Date: 20110510
  Receipt Date: 20110425
  Transmission Date: 20111010
  Serious: Yes (Hospitalization, Other)
  Sender: FDA-Public Use
  Company Number: 031572

PATIENT
  Sex: Female
  Weight: 117.9 kg

DRUGS (7)
  1. NEXIUM [Concomitant]
  2. TYLENOL W/ CODEINE [Concomitant]
  3. ATENOLOL [Concomitant]
  4. CIMZIA [Suspect]
     Indication: RHEUMATOID ARTHRITIS
     Dosage: (400 MG 1X/2 WEEKS SUBCUTANEOUS) ; (200 MG 1X/2 WEEKS SUBCUTANEOUS)
     Route: 058
     Dates: start: 20101208, end: 20110105
  5. CIMZIA [Suspect]
     Indication: RHEUMATOID ARTHRITIS
     Dosage: (400 MG 1X/2 WEEKS SUBCUTANEOUS) ; (200 MG 1X/2 WEEKS SUBCUTANEOUS)
     Route: 058
     Dates: start: 20110119
  6. MELOXICAM [Concomitant]
  7. LISINOPRIL [Concomitant]

REACTIONS (1)
  - CELLULITIS [None]
